FAERS Safety Report 21701769 (Version 1)
Quarter: 2022Q4

REPORT INFORMATION
  Report Type: Spontaneous
  Country: NL (occurrence: NL)
  Receive Date: 20221208
  Receipt Date: 20221208
  Transmission Date: 20230113
  Serious: Yes (Hospitalization)
  Sender: FDA-Public Use
  Company Number: None

PATIENT
  Sex: Male
  Weight: 100 kg

DRUGS (4)
  1. METHOTREXATE (METHOTREXATE SODIUM) [Suspect]
     Active Substance: METHOTREXATE SODIUM
     Indication: Sarcoidosis
     Dosage: 22.5 MG, QW (22,5 MG/WEEK)
     Route: 065
     Dates: start: 20220812
  2. SOTALOL [Suspect]
     Active Substance: SOTALOL
     Indication: Heart rate
     Dosage: UNK, (2/DAG)
     Route: 065
     Dates: start: 20220724, end: 20221026
  3. PREDNISOLONE [Concomitant]
     Active Substance: PREDNISOLONE
     Indication: Product used for unknown indication
     Dosage: 20 MG (CAPSULE, 20 MG (MILLIGRAM)
     Route: 065
  4. PANTOPRAZOLE [Concomitant]
     Active Substance: PANTOPRAZOLE
     Indication: Product used for unknown indication
     Dosage: 40 MG (MAAGSAPRESISTENTE TABLET, 40 MG (MILLIGRAM)
     Route: 065

REACTIONS (1)
  - Arrhythmia [Recovering/Resolving]
